FAERS Safety Report 7801263-2 (Version None)
Quarter: 2011Q4

REPORT INFORMATION
  Report Type: 
  Country: None (occurrence: None)
  Receive Date: 20111007
  Receipt Date: 20110929
  Transmission Date: 20120403
  Serious: No
  Sender: FDA-Public Use
  Company Number: US-BIOGENIDEC-2011BI037190

PATIENT
  Sex: Female

DRUGS (2)
  1. AVONEX [Suspect]
     Route: 030
     Dates: start: 20060301, end: 20071103
  2. AVONEX [Suspect]
     Indication: MULTIPLE SCLEROSIS
     Route: 030
     Dates: start: 20110924

REACTIONS (7)
  - PAIN [None]
  - CHILLS [None]
  - NASOPHARYNGITIS [None]
  - INFLUENZA LIKE ILLNESS [None]
  - HEADACHE [None]
  - FEELING HOT [None]
  - TREMOR [None]
